FAERS Safety Report 13768551 (Version 1)
Quarter: 2017Q3

REPORT INFORMATION
  Report Type: Spontaneous
  Country: JP (occurrence: JP)
  Receive Date: 20170719
  Receipt Date: 20170719
  Transmission Date: 20171127
  Serious: Yes (Other)
  Sender: FDA-Public Use
  Company Number: JP-FRESENIUS KABI-FK201706083

PATIENT
  Age: 28 Year
  Sex: Female

DRUGS (3)
  1. ETOPOSIDE (MANUFACTURER UNKNOWN) [Suspect]
     Active Substance: ETOPOSIDE
     Indication: OVARIAN CANCER
     Route: 065
  2. BLEOMYCIN [Suspect]
     Active Substance: BLEOMYCIN SULFATE
     Indication: OVARIAN CANCER
     Route: 065
  3. CISPLATIN (MANUFACTURER UNKNOWN) [Suspect]
     Active Substance: CISPLATIN
     Indication: OVARIAN CANCER
     Route: 065

REACTIONS (8)
  - Nail discolouration [Unknown]
  - Neutropenia [Unknown]
  - Vomiting [Unknown]
  - Bone marrow toxicity [Unknown]
  - Febrile neutropenia [Recovered/Resolved]
  - Alopecia [Unknown]
  - Platelet count decreased [Unknown]
  - Nausea [Unknown]
